FAERS Safety Report 21888927 (Version 1)
Quarter: 2023Q1

REPORT INFORMATION
  Report Type: Spontaneous
  Country: US (occurrence: US)
  Receive Date: 20230120
  Receipt Date: 20230120
  Transmission Date: 20230418
  Serious: No
  Sender: FDA-Public Use
  Company Number: US-BRISTOL-MYERS SQUIBB COMPANY-2023-009098

PATIENT
  Age: 58 Year
  Sex: Male

DRUGS (1)
  1. REVLIMID [Suspect]
     Active Substance: LENALIDOMIDE
     Indication: Plasma cell myeloma
     Dosage: FREQUENCY: TAKE 1 CAPSULE BY MOUTH ONCE DAILY FOR 14 DAYS.
     Route: 048
     Dates: start: 202209

REACTIONS (5)
  - Hypoaesthesia [Unknown]
  - Myalgia [Unknown]
  - Orthostatic hypotension [Unknown]
  - Blood pressure decreased [Unknown]
  - Off label use [Unknown]
